FAERS Safety Report 9059264 (Version 2)
Quarter: 2013Q2

REPORT INFORMATION
  Report Type: Report from Study
  Country: PL (occurrence: PL)
  Receive Date: 20130211
  Receipt Date: 20130509
  Transmission Date: 20140414
  Serious: Yes (Other)
  Sender: FDA-Public Use
  Company Number: PL-ROCHE-1186867

PATIENT
  Sex: Female

DRUGS (11)
  1. HERCEPTIN [Suspect]
     Indication: BREAST CANCER METASTATIC
     Dosage: LOADING DOSE 4 MG/KG FOLLOWED BY 2MG/KG EVERY 7 DAYS, AFTER 17TH CYCLE 6MG/KG EVERY 3 WEEKS
     Route: 065
     Dates: start: 20021104
  2. HERCEPTIN [Suspect]
     Route: 065
     Dates: start: 20090217
  3. HERCEPTIN [Suspect]
     Dosage: MONOTHERAPY TILL 05/JAN/2010
     Route: 065
  4. XELODA [Suspect]
     Indication: BREAST CANCER METASTATIC
     Route: 065
  5. NAVELBINE [Suspect]
     Indication: BREAST CANCER METASTATIC
     Route: 048
     Dates: start: 20090217, end: 20091013
  6. FARMORUBICIN [Concomitant]
  7. TAMOXIFEN [Concomitant]
  8. ADRIAMYCIN [Concomitant]
     Route: 065
     Dates: start: 200104
  9. CYCLOPHOSPHAMIDE [Concomitant]
     Route: 065
     Dates: start: 200104
  10. 5-FLUOROURACIL [Concomitant]
  11. TAXOL [Concomitant]

REACTIONS (4)
  - Lymphadenopathy [Unknown]
  - Metastatic neoplasm [Unknown]
  - Treatment failure [Unknown]
  - Neutropenia [Unknown]
